FAERS Safety Report 12547761 (Version 1)
Quarter: 2016Q3

REPORT INFORMATION
  Report Type: Report from Study
  Country: US (occurrence: US)
  Receive Date: 20160712
  Receipt Date: 20160712
  Transmission Date: 20161109
  Serious: Yes (Hospitalization, Other)
  Sender: FDA-Public Use
  Company Number: US-ROCHE-1772364

PATIENT
  Age: 58 Year
  Sex: Female
  Weight: 49.1 kg

DRUGS (4)
  1. BEVACIZUMAB [Suspect]
     Active Substance: BEVACIZUMAB
     Indication: OVARIAN CANCER
     Dosage: DATE OF LAST DOSE PRIOR TO SAE: 17/MAR/2016
     Route: 042
     Dates: start: 20151217, end: 20160317
  2. CARBOPLATIN. [Suspect]
     Active Substance: CARBOPLATIN
     Indication: OVARIAN CANCER
     Dosage: AUC 6?DATE OF LAST DOSE PRIOR TO SAE: 17/MAR/2016
     Route: 042
     Dates: start: 20151119, end: 20160317
  3. PACLITAXEL. [Suspect]
     Active Substance: PACLITAXEL
     Indication: OVARIAN CANCER
     Dosage: DATE OF LAST DOSE PRIOR TO SAE: 17/MAR/2016
     Route: 042
     Dates: start: 20151119, end: 20160317
  4. ABT-888 [Suspect]
     Active Substance: VELIPARIB
     Indication: OVARIAN CANCER
     Dosage: DATE OF LAST DOSE PRIOR TO SAE: 19/MAR/2016
     Route: 048
     Dates: start: 20151217, end: 20160319

REACTIONS (4)
  - Small intestinal obstruction [Recovered/Resolved]
  - Abdominal pain [Recovered/Resolved]
  - Vomiting [Recovered/Resolved]
  - Hypertension [Recovered/Resolved]

NARRATIVE: CASE EVENT DATE: 20160323
